FAERS Safety Report 10097979 (Version 2)
Quarter: 2018Q2

REPORT INFORMATION
  Report Type: Report from Study
  Country: US (occurrence: US)
  Receive Date: 20140423
  Receipt Date: 20180620
  Transmission Date: 20180711
  Serious: Yes (Other)
  Sender: FDA-Public Use
  Company Number: US-ROCHE-1384764

PATIENT
  Age: 8 Year
  Sex: Female
  Weight: 33.5 kg

DRUGS (2)
  1. NUTROPIN AQ [Suspect]
     Active Substance: SOMATROPIN
     Dosage: ONGOING: YES
     Route: 058
  2. NUTROPIN AQ [Suspect]
     Active Substance: SOMATROPIN
     Indication: HYPOPITUITARISM
     Dosage: Q HS
     Route: 058

REACTIONS (6)
  - Insulin-like growth factor increased [Unknown]
  - Headache [Unknown]
  - Musculoskeletal stiffness [Unknown]
  - Growth retardation [Unknown]
  - Dry skin [Unknown]
  - Neck pain [Unknown]

NARRATIVE: CASE EVENT DATE: 20131213
